FAERS Safety Report 22239328 (Version 5)
Quarter: 2025Q3

REPORT INFORMATION
  Report Type: Spontaneous
  Country: EU (occurrence: EU)
  Receive Date: 20230421
  Receipt Date: 20250802
  Transmission Date: 20251021
  Serious: Yes (Hospitalization, Other)
  Sender: ALEXION PHARMACEUTICALS
  Company Number: None

PATIENT
  Age: 84 Year
  Sex: Male

DRUGS (48)
  1. DAPAGLIFLOZIN [Suspect]
     Active Substance: DAPAGLIFLOZIN
     Indication: Cardiac failure
     Dosage: 10 MILLIGRAM, QD
     Dates: start: 20220330, end: 20230310
  2. DAPAGLIFLOZIN [Suspect]
     Active Substance: DAPAGLIFLOZIN
  3. DAPAGLIFLOZIN [Suspect]
     Active Substance: DAPAGLIFLOZIN
  4. BISOPROLOL [Suspect]
     Active Substance: BISOPROLOL
     Indication: Hypertension
     Dosage: 5 MG, 1X/DAY
     Dates: start: 20230303, end: 20230310
  5. BISOPROLOL [Suspect]
     Active Substance: BISOPROLOL
     Dosage: 5 MG QD
     Dates: start: 20230227
  6. BISOPROLOL [Suspect]
     Active Substance: BISOPROLOL
     Dosage: 5 MILLIGRAM, QD
     Dates: start: 2015, end: 20230227
  7. BISOPROLOL [Suspect]
     Active Substance: BISOPROLOL
  8. BUMETANIDE [Suspect]
     Active Substance: BUMETANIDE
     Indication: Cardiac failure
     Dosage: 0.5 MILLIGRAM, QD
     Dates: start: 20220517, end: 20230310
  9. BUMETANIDE [Suspect]
     Active Substance: BUMETANIDE
     Indication: Cardiac failure
     Dosage: 1 MILLIGRAM, QD
     Dates: start: 20220401, end: 20220516
  10. BUMETANIDE [Suspect]
     Active Substance: BUMETANIDE
     Dosage: 2 MILLIGRAM, QD
     Dates: start: 20230308, end: 20230308
  11. BUMETANIDE [Suspect]
     Active Substance: BUMETANIDE
     Route: 065
  12. SPIRONOLACTONE [Suspect]
     Active Substance: SPIRONOLACTONE
     Indication: Left ventricular hypertrophy
     Dosage: 25 MILLIGRAM, QD
     Dates: start: 201712, end: 20230310
  13. ACORAMIDIS [Suspect]
     Active Substance: ACORAMIDIS
  14. ACETYLCYSTEINE [Concomitant]
     Active Substance: ACETYLCYSTEINE
     Indication: Cough
     Dosage: 600 MILLIGRAM, QD
     Dates: start: 20191125
  15. ACETYLCYSTEINE [Concomitant]
     Active Substance: ACETYLCYSTEINE
     Indication: Cough
  16. FOLIC ACID [Concomitant]
     Active Substance: FOLIC ACID
     Indication: Product used for unknown indication
     Dosage: 4 MILLIGRAM, QD
     Dates: start: 20230302
  17. FOLIC ACID [Concomitant]
     Active Substance: FOLIC ACID
     Indication: Folate deficiency
  18. EDOXABAN TOSYLATE [Concomitant]
     Active Substance: EDOXABAN TOSYLATE
     Indication: Atrial fibrillation
     Dosage: 30 MILLIGRAM, QD
     Dates: start: 20230306, end: 20230310
  19. EDOXABAN TOSYLATE [Concomitant]
     Active Substance: EDOXABAN TOSYLATE
     Route: 065
  20. CORDARONE [Concomitant]
     Active Substance: AMIODARONE HYDROCHLORIDE
     Indication: Product used for unknown indication
     Dosage: 200 MILLIGRAM, QD
     Dates: start: 20230309
  21. CORDARONE [Concomitant]
     Active Substance: AMIODARONE HYDROCHLORIDE
     Indication: Atrial fibrillation
     Dosage: 300 MG, 1X/DAY
     Dates: start: 20230309, end: 20230309
  22. TAMSULOSIN HYDROCHLORIDE [Concomitant]
     Active Substance: TAMSULOSIN HYDROCHLORIDE
     Indication: Benign prostatic hyperplasia
     Dosage: 0.4 MILLIGRAM, QD
     Dates: end: 2009
  23. Pantomed [Concomitant]
     Indication: Gastric ulcer
     Dosage: 40 MILLIGRAM, QD
     Dates: start: 2009
  24. SIMVASTATIN [Concomitant]
     Active Substance: SIMVASTATIN
     Indication: Hypercholesterolaemia
     Dosage: 20 MILLIGRAM, QD
     Dates: start: 2017
  25. IMODIUM [Concomitant]
     Active Substance: LOPERAMIDE HYDROCHLORIDE
     Indication: Diarrhoea
     Dosage: 2 MG, 1X/DAY
     Dates: start: 20230109, end: 20230114
  26. IMODIUM [Concomitant]
     Active Substance: LOPERAMIDE HYDROCHLORIDE
  27. COVID-19 vaccine [Concomitant]
     Indication: COVID-19
  28. DIAMOX SEQUELS [Concomitant]
     Active Substance: ACETAZOLAMIDE
     Indication: Cardiac failure
     Dosage: 500 MILLIGRAM, QD
     Dates: start: 20230308, end: 20230308
  29. ALIZAPRIDE HYDROCHLORIDE [Concomitant]
     Active Substance: ALIZAPRIDE HYDROCHLORIDE
     Indication: Nausea
     Dates: start: 20230302, end: 20230302
  30. ISOPROTERENOL HYDROCHLORIDE [Concomitant]
     Active Substance: ISOPROTERENOL HYDROCHLORIDE
     Indication: Bradycardia
     Dates: start: 20230227, end: 20230228
  31. ISOPROTERENOL HYDROCHLORIDE [Concomitant]
     Active Substance: ISOPROTERENOL HYDROCHLORIDE
     Dates: start: 20230227, end: 20230228
  32. MAGNESIUM [Concomitant]
     Active Substance: MAGNESIUM
     Indication: Magnesium deficiency
     Dosage: 3 G, 1X/DAY
     Dates: start: 20230302, end: 20230303
  33. ENTRESTO [Concomitant]
     Active Substance: SACUBITRIL\VALSARTAN
     Indication: Cardiac failure
     Dosage: (SACUBITRIL 24MG)/(VALSARTAN 26MG), AN UNREPORTED INDICATION 0.5 CO TWICE DAILY,[SACUBITRIL 24MG]/[VALSARTAN 26MG], 0.5 CO
     Dates: start: 20230309, end: 20230310
  34. ENTRESTO [Concomitant]
     Active Substance: SACUBITRIL\VALSARTAN
     Dates: start: 20230309, end: 20230310
  35. ENOXAPARIN SODIUM [Concomitant]
     Active Substance: ENOXAPARIN SODIUM
     Indication: Thrombosis
     Dosage: 40 MG, 1X/DAY
  36. FENTANYL [Concomitant]
     Active Substance: FENTANYL
     Indication: Sedation
     Dosage: 0.05 MG, ONCE
     Dates: start: 20230301, end: 20230301
  37. FENTANYL [Concomitant]
     Active Substance: FENTANYL
     Indication: Sedative therapy
  38. CEFAZOLIN SODIUM [Concomitant]
     Active Substance: CEFAZOLIN SODIUM
     Indication: Sedation
     Dosage: DOSAGE: 2 GRAM FOR SEDATION DURING PACEMAKER IMPLANTATION
     Dates: start: 20230301, end: 20230301
  39. PROPOFOL [Concomitant]
     Active Substance: PROPOFOL
     Indication: Sedation
     Dosage: 40 MG, ONCE
     Dates: start: 20230309, end: 20230309
  40. PROPOFOL [Concomitant]
     Active Substance: PROPOFOL
     Indication: Sedative therapy
  41. ASPIRIN [Concomitant]
     Active Substance: ASPIRIN
     Indication: Thrombosis prophylaxis
     Dosage: 80 MG, 1X/DAY
     Dates: start: 2015, end: 20230305
  42. TRAMADOL HYDROCHLORIDE [Concomitant]
     Active Substance: TRAMADOL HYDROCHLORIDE
     Indication: Pain
     Dosage: FOR PAIN AFTER PACEMAKER IMPLANTATION
     Dates: start: 20230302, end: 20230302
  43. TRAMADOL HYDROCHLORIDE [Concomitant]
     Active Substance: TRAMADOL HYDROCHLORIDE
     Indication: Pain
  44. MOMETASONE [Concomitant]
     Active Substance: MOMETASONE
     Indication: Rhinitis
  45. MOMETASONE [Concomitant]
     Active Substance: MOMETASONE
     Indication: Rhinitis prophylaxis
  46. Proshield [Concomitant]
     Indication: Skin irritation
     Dosage: 1 APPLICATION, 2X/DAY
     Dates: start: 20230309
  47. Comirnaty [Concomitant]
     Dates: start: 20210331, end: 20210331
  48. Comirnaty [Concomitant]
     Dates: start: 20210505, end: 20210505

REACTIONS (3)
  - Acute kidney injury [Recovered/Resolved]
  - Atrial fibrillation [Recovered/Resolved]
  - Atrioventricular block [Recovered/Resolved]
